FAERS Safety Report 5201417-8 (Version None)
Quarter: 2007Q1

REPORT INFORMATION
  Report Type: 
  Country: None (occurrence: None)
  Receive Date: 20070104
  Receipt Date: 20061227
  Transmission Date: 20070707
  Serious: Yes (Other)
  Sender: FDA-Public Use
  Company Number: 009175

PATIENT
  Age: 31 Year
  Sex: Female

DRUGS (7)
  1. DIDANOSINE [Suspect]
     Indication: RETROVIRAL INFECTION
     Dates: start: 20040901
  2. NORVIR [Suspect]
     Indication: RETROVIRAL INFECTION
  3. FUZEON [Suspect]
     Indication: RETROVIRAL INFECTION
     Dosage: 90 MG, BID, SUBCUTANEOUS
     Route: 058
  4. REYATAZ [Suspect]
     Indication: RETROVIRAL INFECTION
  5. EPIVIR [Suspect]
     Indication: RETROVIRAL INFECTION
  6. VALGANCICLOVIR HCL [Suspect]
     Indication: RETROVIRAL INFECTION
     Dates: start: 20040901
  7. COTRIMOXAZOL COPHAR  (SULFAMETHOXAZOLE, TRIMETHOPRIM) [Suspect]
     Dates: start: 20040101

REACTIONS (4)
  - ABORTION SPONTANEOUS [None]
  - INTRA-UTERINE DEATH [None]
  - PLACENTAL INFARCTION [None]
  - UMBILICAL CORD ABNORMALITY [None]
